FAERS Safety Report 5757956-4 (Version None)
Quarter: 2008Q2

REPORT INFORMATION
  Report Type: 
  Country: None (occurrence: None)
  Receive Date: 20080602
  Receipt Date: 20080602
  Transmission Date: 20081010
  Serious: Yes (Other)
  Sender: FDA-Public Use
  Company Number: None

PATIENT
  Age: 50 Year
  Sex: Female
  Weight: 83.9154 kg

DRUGS (1)
  1. SIMVASTATIN [Suspect]
     Indication: BLOOD CHOLESTEROL INCREASED
     Dosage: 20 MG  1 TIME DAILY PO
     Route: 048
     Dates: start: 20071212, end: 20080331

REACTIONS (3)
  - CARDIAC FLUTTER [None]
  - GROIN PAIN [None]
  - PALPITATIONS [None]
